FAERS Safety Report 5076631-5 (Version None)
Quarter: 2006Q3

REPORT INFORMATION
  Report Type: 
  Country: None (occurrence: None)
  Receive Date: 20060725
  Receipt Date: 20060206
  Transmission Date: 20061208
  Serious: No
  Sender: FDA-Public Use
  Company Number: 200610734BWH

PATIENT
  Age: 66 Year
  Sex: Male

DRUGS (8)
  1. SORAFENIB [Suspect]
     Indication: RENAL CELL CARCINOMA STAGE UNSPECIFIED
     Dosage: 400 MG, BID, ORAL
     Route: 048
     Dates: start: 20051101
  2. MAXZIDE [Concomitant]
  3. ALLOPURINOL [Concomitant]
  4. PHENERGAN [Concomitant]
  5. LEVOXYL [Concomitant]
  6. VITAMIN B12 AMINO [Concomitant]
  7. ZANTAC [Concomitant]
  8. GLUCOSAMINE [Concomitant]

REACTIONS (9)
  - ALOPECIA [None]
  - COUGH [None]
  - DIARRHOEA [None]
  - DIZZINESS [None]
  - DRY SKIN [None]
  - EYE PAIN [None]
  - FEELING ABNORMAL [None]
  - HYPERTENSION [None]
  - RASH MACULAR [None]
